FAERS Safety Report 4349773-7 (Version None)
Quarter: 2004Q2

REPORT INFORMATION
  Report Type: 
  Country: None (occurrence: None)
  Receive Date: 20040426
  Receipt Date: 20040314
  Transmission Date: 20050107
  Serious: Yes (Hospitalization, Other)
  Sender: FDA-Public Use
  Company Number: KII-2004-0009694

PATIENT
  Age: 20 Year
  Sex: Female

DRUGS (6)
  1. OXYCONTIN [Suspect]
     Indication: DRUG USE FOR UNKNOWN INDICATION
  2. ACETAMINOPHEN [Suspect]
     Indication: DRUG USE FOR UNKNOWN INDICATION
  3. BENZODIAZEPINES DERIVATIVES () [Suspect]
     Indication: DRUG USE FOR UNKNOWN INDICATION
  4. ANTIDEPRESSANTS () [Suspect]
     Indication: DRUG USE FOR UNKNOWN INDICATION
  5. ANTIHISTAMINES FOR SYSTEMIC USE () [Suspect]
     Indication: DRUG USE FOR UNKNOWN INDICATION
  6. ALCOHOL (ETHANOL) [Suspect]
     Indication: DRUG USE FOR UNKNOWN INDICATION

REACTIONS (11)
  - ALCOHOL USE [None]
  - BLOOD CALCIUM DECREASED [None]
  - BLOOD CHLORIDE INCREASED [None]
  - BLOOD LACTIC ACID DECREASED [None]
  - COMA [None]
  - HEAD INJURY [None]
  - MULTIPLE DRUG OVERDOSE [None]
  - PCO2 DECREASED [None]
  - PO2 INCREASED [None]
  - POLYTRAUMATISM [None]
  - ROAD TRAFFIC ACCIDENT [None]
